FAERS Safety Report 9259498 (Version 1)
Quarter: 2013Q2

REPORT INFORMATION
  Report Type: Spontaneous
  Country: US (occurrence: US)
  Receive Date: 20130428
  Receipt Date: 20130428
  Transmission Date: 20140414
  Serious: No
  Sender: FDA-Public Use
  Company Number: US-009507513-1304USA013555

PATIENT
  Sex: Male

DRUGS (2)
  1. SYLATRON [Suspect]
     Indication: MALIGNANT MELANOMA STAGE III
     Dosage: 6 MICROGRAM PER KILOGRAM, QW
     Route: 058
     Dates: start: 20130222
  2. SYLATRON [Suspect]
     Dosage: 3 MICROGRAM PER KILOGRAM, QW
     Route: 058

REACTIONS (2)
  - Alopecia [Not Recovered/Not Resolved]
  - Rash [Recovering/Resolving]
